FAERS Safety Report 11584532 (Version 1)
Quarter: 2015Q4

REPORT INFORMATION
  Report Type: Spontaneous
  Country: TW (occurrence: TW)
  Receive Date: 20151001
  Receipt Date: 20151001
  Transmission Date: 20160304
  Serious: Yes (Hospitalization)
  Sender: FDA-Public Use
  Company Number: PHHY2015TW114931

PATIENT
  Age: 10 Year
  Sex: Female
  Weight: 54 kg

DRUGS (2)
  1. LIDOCAINE. [Suspect]
     Active Substance: LIDOCAINE
     Indication: PRODUCT USED FOR UNKNOWN INDICATION
     Dosage: 50 UG/KG, UNK
     Route: 042
  2. FENTANYL. [Interacting]
     Active Substance: FENTANYL
     Indication: PRODUCT USED FOR UNKNOWN INDICATION
     Dosage: 1.85 UG/KG, UNK
     Route: 042

REACTIONS (2)
  - Drug interaction [Recovering/Resolving]
  - Generalised tonic-clonic seizure [Recovering/Resolving]
